FAERS Safety Report 4388462-X (Version None)
Quarter: 2004Q2

REPORT INFORMATION
  Report Type: 
  Country: None (occurrence: None)
  Receive Date: 20040624
  Receipt Date: 20040607
  Transmission Date: 20050107
  Serious: Yes (Other)
  Sender: FDA-Public Use
  Company Number: 2004217365JP

PATIENT
  Age: 48 Year
  Sex: Male

DRUGS (2)
  1. NORPACE [Suspect]
     Indication: SUPRAVENTRICULAR TACHYCARDIA
     Dosage: ORAL
     Route: 048
  2. VERAPAMIL [Concomitant]

REACTIONS (1)
  - BRUGADA SYNDROME [None]
